FAERS Safety Report 9293103 (Version 1)
Quarter: 2013Q2

REPORT INFORMATION
  Report Type: Spontaneous
  Country: US (occurrence: None)
  Receive Date: 20130514
  Receipt Date: 20130514
  Transmission Date: 20140414
  Serious: Yes (Hospitalization, Congenital Anomaly)
  Sender: FDA-Public Use
  Company Number: 2013AP005111

PATIENT
  Sex: Male

DRUGS (2)
  1. LITHIUM CARBONATE CAPSULES [Suspect]
     Indication: SCHIZOPHRENIA
     Route: 064
  2. CLOZAPINE [Concomitant]

REACTIONS (7)
  - Ductus arteriosus premature closure [None]
  - Persistent foetal circulation [None]
  - Right atrial dilatation [None]
  - Dilatation ventricular [None]
  - Premature baby [None]
  - Caesarean section [None]
  - Maternal drugs affecting foetus [None]
